FAERS Safety Report 9282809 (Version 2)
Quarter: 2013Q2

REPORT INFORMATION
  Report Type: Spontaneous
  Country: US (occurrence: None)
  Receive Date: 20101119
  Receipt Date: 20130419
  Transmission Date: 20140414
  Serious: Yes (Hospitalization)
  Sender: FDA-Public Use
  Company Number: 54973 RSAE102610TG-001

PATIENT
  Age: 17 Month
  Sex: Male
  Weight: 13.61 kg

DRUGS (1)
  1. HYLAND^S TEETHING TABLETS [Suspect]
     Indication: TEETHING

REACTIONS (8)
  - Lethargy [None]
  - Neurological symptom [None]
  - Muscle twitching [None]
  - Flushing [None]
  - Pallor [None]
  - Balance disorder [None]
  - Viral infection [None]
  - Hypotonia [None]
